FAERS Safety Report 16908282 (Version 2)
Quarter: 2019Q4

REPORT INFORMATION
  Report Type: Report from Study
  Country: CO (occurrence: CO)
  Receive Date: 20191011
  Receipt Date: 20191029
  Transmission Date: 20200122
  Serious: Yes (Hospitalization, Other)
  Sender: FDA-Public Use
  Company Number: CO-ASTELLAS-2019US026478

PATIENT
  Age: 31 Year
  Sex: Male
  Weight: 65 kg

DRUGS (11)
  1. TRIMETHOPRIM. [Concomitant]
     Active Substance: TRIMETHOPRIM
     Indication: RENAL TRANSPLANT
     Route: 048
     Dates: start: 20190322
  2. ESOMEPRAZOLE. [Concomitant]
     Active Substance: ESOMEPRAZOLE MAGNESIUM
     Indication: GASTRITIS
     Route: 048
  3. TACROLIMUS. [Suspect]
     Active Substance: TACROLIMUS
     Indication: RENAL TRANSPLANT
     Dosage: 15 MG, ONCE DAILY (3 CAPSULES OF 5MG)
     Route: 048
     Dates: start: 20190322, end: 201905
  4. TACROLIMUS. [Suspect]
     Active Substance: TACROLIMUS
     Dosage: 14 MG, ONCE DAILY (2 CAPSULES OF 5MG AND 4 CAPSULES OF 1MG)
     Route: 048
     Dates: start: 201905
  5. PREDNISOLONE. [Concomitant]
     Active Substance: PREDNISOLONE
     Indication: RENAL TRANSPLANT
     Route: 048
     Dates: start: 20190322
  6. TACROLIMUS. [Suspect]
     Active Substance: TACROLIMUS
     Dosage: 5 MG, ONCE DAILY (1 CAPSULE OF 5 MG)
     Route: 048
     Dates: start: 20190910
  7. PREDNISOLONE. [Concomitant]
     Active Substance: PREDNISOLONE
     Route: 048
  8. VALGANCICLOVIR. [Concomitant]
     Active Substance: VALGANCICLOVIR
     Indication: RENAL TRANSPLANT
     Dosage: 900 MG, ONCE DAILY (2 TABLETS OF 450MG DAILY)
     Route: 048
     Dates: start: 20190322
  9. TACROLIMUS. [Suspect]
     Active Substance: TACROLIMUS
     Dosage: 14.5 MG, ONCE DAILY (2 CAPSULES OF 5 MG, 4 CAPSULES OF 1 MG AND 1 CAPSULE OF 0.5 MG)
     Route: 048
     Dates: end: 20190909
  10. ESOMEPRAZOLE. [Concomitant]
     Active Substance: ESOMEPRAZOLE MAGNESIUM
     Indication: RENAL TRANSPLANT
     Route: 048
     Dates: start: 20190322
  11. MYCOPHENOLATE [Concomitant]
     Active Substance: MYCOPHENOLIC ACID
     Indication: RENAL TRANSPLANT
     Route: 048
     Dates: start: 20190322

REACTIONS (3)
  - Immunosuppression [Not Recovered/Not Resolved]
  - Blood creatinine increased [Recovering/Resolving]
  - Lower respiratory tract infection viral [Recovering/Resolving]

NARRATIVE: CASE EVENT DATE: 20190613
